FAERS Safety Report 9678635 (Version 1)
Quarter: 2013Q4

REPORT INFORMATION
  Report Type: Spontaneous
  Country: GB (occurrence: GB)
  Receive Date: 20131108
  Receipt Date: 20131108
  Transmission Date: 20140711
  Serious: Yes (Other)
  Sender: FDA-Public Use
  Company Number: GB-PFIZER INC-2013317311

PATIENT
  Age: 73 Year
  Sex: Female
  Weight: 66.4 kg

DRUGS (2)
  1. PREGABALIN [Suspect]
     Indication: SCIATICA
     Dosage: 50 MG, UNK
     Route: 048
     Dates: start: 20130524, end: 20130813
  2. COLECALCIFEROL [Concomitant]
     Indication: VITAMIN D DEFICIENCY
     Dosage: 20000 IU, UNK
     Route: 048
     Dates: start: 20130710, end: 201309

REACTIONS (1)
  - Neutropenia [Recovered/Resolved]
